FAERS Safety Report 16738494 (Version 1)
Quarter: 2019Q3

REPORT INFORMATION
  Report Type: Spontaneous
  Country: US (occurrence: US)
  Receive Date: 20190826
  Receipt Date: 20190826
  Transmission Date: 20191005
  Serious: No
  Sender: FDA-Public Use
  Company Number: US-JNJFOC-20190820948

PATIENT
  Sex: Female

DRUGS (1)
  1. WOMENS ROGAINE [Suspect]
     Active Substance: MINOXIDIL
     Indication: ALOPECIA
     Route: 061

REACTIONS (4)
  - Application site dryness [Not Recovered/Not Resolved]
  - Application site pruritus [Not Recovered/Not Resolved]
  - Dandruff [Not Recovered/Not Resolved]
  - Alopecia [Not Recovered/Not Resolved]
